FAERS Safety Report 13980572 (Version 2)
Quarter: 2017Q4

REPORT INFORMATION
  Report Type: Spontaneous
  Country: US (occurrence: US)
  Receive Date: 20170918
  Receipt Date: 20171101
  Transmission Date: 20180321
  Serious: No
  Sender: FDA-Public Use
  Company Number: US-B.I. PHARMACEUTICALS,INC./RIDGEFIELD-2017-BI-049739

PATIENT
  Age: 64 Year
  Sex: Female

DRUGS (2)
  1. OFEV [Suspect]
     Active Substance: NINTEDANIB
     Indication: IDIOPATHIC PULMONARY FIBROSIS
     Dosage: BID;  FORM STRENGTH: 150 MG; FORMULATION: CAPSULE? ACTION(S) TAKEN WITH PRODUCT: DRUG WITHDRAWN
     Route: 048
     Dates: start: 201706, end: 20170829
  2. OFEV [Suspect]
     Active Substance: NINTEDANIB
     Dosage: BID;  FORM STRENGTH: 100 MG; FORMULATION: CAPLET? ADMINISTRATION CORRECT? NR(NOT REPORTED) ?ACTION(S
     Route: 048
     Dates: start: 20170907

REACTIONS (5)
  - Chromaturia [Recovered/Resolved]
  - Blood alkaline phosphatase increased [Unknown]
  - Abdominal pain upper [Recovered/Resolved]
  - Diarrhoea [Recovered/Resolved]
  - Fatigue [Recovered/Resolved]

NARRATIVE: CASE EVENT DATE: 201708
